FAERS Safety Report 18468157 (Version 1)
Quarter: 2020Q4

REPORT INFORMATION
  Report Type: Other
  Country: US (occurrence: US)
  Receive Date: 20201105
  Receipt Date: 20201105
  Transmission Date: 20210114
  Serious: Yes (Death, Hospitalization, Other)
  Sender: FDA-Public Use
  Company Number: US-ROCHE-2707590

PATIENT

DRUGS (13)
  1. CALCIUM LEUCOVORIN [Concomitant]
     Active Substance: LEUCOVORIN CALCIUM
     Route: 042
  2. RITUXIMAB. [Suspect]
     Active Substance: RITUXIMAB
     Indication: BURKITT^S LYMPHOMA
     Dosage: OVER 2 TO 6 HOURS ON DAYS 1 AND 11 OF HYPER-CVAD
     Route: 042
  3. SODIUM 2-MERCAPTOETHANESULFONATE [Concomitant]
     Dosage: DAYS 1-3; 2
  4. ACETAZOLAMIDE. [Concomitant]
     Active Substance: ACETAZOLAMIDE
     Route: 048
  5. CYCLOPHOSPHAMIDE. [Suspect]
     Active Substance: CYCLOPHOSPHAMIDE
     Indication: BURKITT^S LYMPHOMA
     Dosage: FOR 6 DOSES DAYS 1 TO 3
     Route: 042
  6. VINCRISTINE [Suspect]
     Active Substance: VINCRISTINE
     Indication: BURKITT^S LYMPHOMA
     Dosage: DAYS 4 AND 11
     Route: 042
  7. CYTARABINE. [Concomitant]
     Active Substance: CYTARABINE
     Dosage: 3 G/M2 FOR 4 DOSES DAYS 2 AND 3
     Route: 042
  8. CALCIUM LEUCOVORIN [Concomitant]
     Active Substance: LEUCOVORIN CALCIUM
     Dosage: FOR 8 DOSES
     Route: 042
  9. DEXAMETHASONE. [Suspect]
     Active Substance: DEXAMETHASONE
     Indication: BURKITT^S LYMPHOMA
     Dosage: DAYS 1 TO 4 AND 11 TO 14
     Route: 065
  10. ALLOPURINOL. [Concomitant]
     Active Substance: ALLOPURINOL
     Indication: PROPHYLAXIS
     Route: 042
  11. SODIUM BICARBONATE. [Concomitant]
     Active Substance: SODIUM BICARBONATE
     Indication: PROPHYLAXIS
     Dosage: DAYS 1 TO 3
     Route: 048
  12. DOXORUBICIN [Suspect]
     Active Substance: DOXORUBICIN
     Indication: BURKITT^S LYMPHOMA
     Dosage: OVER 24 HOURS VIA CENTRAL VENOUS CATHETER DAY 4
     Route: 042
  13. METHOTREXATE. [Concomitant]
     Active Substance: METHOTREXATE
     Indication: PROPHYLAXIS
     Dosage: 1 G/M2, OVER 24 HOURS DAY 1
     Route: 042

REACTIONS (13)
  - Myelosuppression [Unknown]
  - Febrile neutropenia [Unknown]
  - Pneumonia cytomegaloviral [Fatal]
  - Gastrointestinal haemorrhage [Recovered/Resolved]
  - Renal failure [Unknown]
  - Pyrexia [Unknown]
  - Urinary bladder haemorrhage [Recovered/Resolved]
  - Sepsis [Unknown]
  - Ileus [Unknown]
  - Tumour lysis syndrome [Unknown]
  - Thrombocytopenia [Unknown]
  - Neuropathy peripheral [Unknown]
  - Pneumonia [Unknown]
